FAERS Safety Report 5189220-9 (Version None)
Quarter: 2006Q4

REPORT INFORMATION
  Report Type: 
  Country: None (occurrence: None)
  Receive Date: 20061215
  Receipt Date: 20061205
  Transmission Date: 20070319
  Serious: Yes (Other)
  Sender: FDA-Public Use
  Company Number: 2006126758

PATIENT
  Sex: Male
  Weight: 88.905 kg

DRUGS (6)
  1. LIPITOR [Suspect]
     Indication: BLOOD CHOLESTEROL INCREASED
     Dosage: 20 MG (20 MG, 1 IN 1 D)
     Dates: start: 20040727
  2. LIPITOR [Suspect]
     Indication: DYSLIPIDAEMIA
     Dosage: 20 MG (20 MG, 1 IN 1 D)
     Dates: start: 20040727
  3. BENAZEPRIL (BENAZEPRIL) [Concomitant]
  4. VIAGRA [Concomitant]
  5. SYNTHROID [Concomitant]
  6. ACIPHEX [Concomitant]

REACTIONS (2)
  - BACK PAIN [None]
  - MUSCULAR WEAKNESS [None]
